FAERS Safety Report 18237083 (Version 2)
Quarter: 2020Q3

REPORT INFORMATION
  Report Type: Spontaneous
  Country: PL (occurrence: PL)
  Receive Date: 20200907
  Receipt Date: 20200911
  Transmission Date: 20201103
  Serious: Yes (Other)
  Sender: FDA-Public Use
  Company Number: PL-AMGEN-POLSP2020142366

PATIENT

DRUGS (3)
  1. FILGRASTIM [Suspect]
     Active Substance: FILGRASTIM
     Indication: HAEMATOPOIETIC STEM CELL MOBILISATION
     Dosage: 5 MICROGRAM/KILOGRAM, BID, ON THE FIFTH DAY AFTER CHEMOTHERAPY TILL THE LAST APHERESIS DAY
     Route: 058
  2. CYCLOPHOSPHAMIDE. [Suspect]
     Active Substance: CYCLOPHOSPHAMIDE
     Indication: HAEMATOPOIETIC STEM CELL MOBILISATION
     Dosage: 1 TO 2 OR 2 TO 4.5 MILLIGRAM/SQ. METER
     Route: 065
  3. CYTARABINE. [Suspect]
     Active Substance: CYTARABINE
     Indication: HAEMATOPOIETIC STEM CELL MOBILISATION
     Dosage: 400 MILLIGRAM/SQ. METER, BID (FOR TWO SUBSEQUENT DAYS)
     Route: 065

REACTIONS (3)
  - Plasma cell myeloma [Unknown]
  - Infection [Unknown]
  - Treatment failure [Unknown]
